FAERS Safety Report 8228743-2 (Version None)
Quarter: 2012Q1

REPORT INFORMATION
  Report Type: 
  Country: None (occurrence: None)
  Receive Date: 20120322
  Receipt Date: 20120315
  Transmission Date: 20120608
  Serious: Yes (Hospitalization)
  Sender: FDA-Public Use
  Company Number: US-GLAXOSMITHKLINE-A0932377A

PATIENT
  Age: 58 Year
  Sex: Male

DRUGS (1)
  1. AVANDIA [Suspect]
     Indication: DIABETES MELLITUS
     Route: 048
     Dates: start: 20030603, end: 20061101

REACTIONS (7)
  - PAIN [None]
  - CARDIAC OPERATION [None]
  - STENT PLACEMENT [None]
  - CARDIAC DISORDER [None]
  - MOBILITY DECREASED [None]
  - AORTIC DISSECTION [None]
  - CARDIOVASCULAR DISORDER [None]
